FAERS Safety Report 20597442 (Version 1)
Quarter: 2022Q1

REPORT INFORMATION
  Report Type: Spontaneous
  Country: US (occurrence: US)
  Receive Date: 20220315
  Receipt Date: 20220315
  Transmission Date: 20220423
  Serious: Yes (Hospitalization)
  Sender: FDA-Public Use
  Company Number: US-MYLANLABS-2022M1019584

PATIENT
  Age: 72 Year
  Sex: Male

DRUGS (4)
  1. PREDNISONE [Suspect]
     Active Substance: PREDNISONE
     Indication: Organising pneumonia
     Dosage: 80 MILLIGRAM, QD, DOSAGE: 1MG/KG
     Route: 048
  2. PREDNISONE [Suspect]
     Active Substance: PREDNISONE
     Dosage: 0.4 MILLIGRAM/KILOGRAM
     Route: 048
  3. VANCOMYCIN [Concomitant]
     Active Substance: VANCOMYCIN
     Indication: Evidence based treatment
     Dosage: UNK
     Route: 042
  4. APIXABAN [Concomitant]
     Active Substance: APIXABAN
     Indication: Atrial fibrillation
     Dosage: UNK
     Route: 065

REACTIONS (3)
  - Psychotic disorder [Unknown]
  - Delirium [Unknown]
  - Drug ineffective [Unknown]
